FAERS Safety Report 16931388 (Version 1)
Quarter: 2019Q4

REPORT INFORMATION
  Report Type: Spontaneous
  Country: DE (occurrence: DE)
  Receive Date: 20191017
  Receipt Date: 20191017
  Transmission Date: 20200122
  Serious: Yes (Hospitalization, Other)
  Sender: FDA-Public Use
  Company Number: DE-TAKEDA-2019TUS054885

PATIENT
  Age: 78 Year
  Sex: Female

DRUGS (7)
  1. ELIQUIS [Concomitant]
     Active Substance: APIXABAN
     Dosage: 2.5 MILLIGRAM, BID
     Route: 048
  2. DEKRISTOL [Concomitant]
     Active Substance: CHOLECALCIFEROL
     Dosage: 20000 INTERNATIONAL UNIT, Q2WEEKS
     Route: 048
  3. ALLOPURINOL 1 A PHARMA [Concomitant]
     Dosage: 150 MILLIGRAM, QD
     Route: 048
  4. ADENURIC [Suspect]
     Active Substance: FEBUXOSTAT
     Indication: HYPERURICAEMIA
     Dosage: 80 MILLIGRAM, QD
     Route: 048
     Dates: start: 201810, end: 201901
  5. LERCANIDIPIN HEUMANN [Concomitant]
     Dosage: 20 MILLIGRAM, QD
     Route: 048
  6. CANDESARTAN 1A PHARMA [Concomitant]
     Active Substance: CANDESARTAN CILEXETIL
     Dosage: 16 MILLIGRAM, BID
     Route: 048
  7. BISOPROLOL [Concomitant]
     Active Substance: BISOPROLOL
     Dosage: 2.5 MILLIGRAM, QD
     Route: 065

REACTIONS (8)
  - Hepatic failure [Recovered/Resolved]
  - Renal failure [Recovered/Resolved]
  - Faeces discoloured [Recovered/Resolved]
  - Jaundice [Recovered/Resolved]
  - Renal failure [Recovered/Resolved]
  - Chromaturia [Recovered/Resolved]
  - Blood bilirubin increased [Recovered/Resolved]
  - Gamma-glutamyltransferase increased [Recovered/Resolved]

NARRATIVE: CASE EVENT DATE: 20190121
